FAERS Safety Report 4280767-6 (Version None)
Quarter: 2004Q1

REPORT INFORMATION
  Report Type: 
  Country: None (occurrence: None)
  Receive Date: 20040127
  Receipt Date: 20040112
  Transmission Date: 20041129
  Serious: Yes (Other)
  Sender: FDA-Public Use
  Company Number: 2003IM001223

PATIENT
  Age: 70 Year
  Sex: Male

DRUGS (1)
  1. ADVAFERON (A643_INTERFERON ALFACON-1) [Suspect]
     Indication: HEPATITIS C
     Dosage: 18 MU; QOD; SUBCUTANEOUS
     Route: 058
     Dates: start: 20021017, end: 20030319

REACTIONS (6)
  - ERYTHEMA [None]
  - INJECTION SITE NECROSIS [None]
  - INJECTION SITE PAIN [None]
  - PRURITUS [None]
  - PSORIASIS [None]
  - SCAR [None]
